FAERS Safety Report 6997847-4 (Version None)
Quarter: 2010Q3

REPORT INFORMATION
  Report Type: 
  Country: None (occurrence: None)
  Receive Date: 20100920
  Receipt Date: 20100915
  Transmission Date: 20110219
  Serious: No
  Sender: FDA-Public Use
  Company Number: US-BIOGENIDEC-2010BI031709

PATIENT
  Age: 50 Year
  Sex: Female

DRUGS (3)
  1. AVONEX [Suspect]
     Indication: MULTIPLE SCLEROSIS
     Route: 030
  2. AVONEX [Suspect]
     Route: 030
  3. REBIF [Concomitant]
     Indication: MULTIPLE SCLEROSIS

REACTIONS (12)
  - BACK PAIN [None]
  - BALANCE DISORDER [None]
  - CONTUSION [None]
  - CYSTITIS [None]
  - FALL [None]
  - GAIT DISTURBANCE [None]
  - HEAD INJURY [None]
  - MENOPAUSE [None]
  - PERIORBITAL HAEMATOMA [None]
  - POSTURE ABNORMAL [None]
  - URINARY INCONTINENCE [None]
  - URINARY RETENTION [None]
